FAERS Safety Report 8997187 (Version 1)
Quarter: 2013Q1

REPORT INFORMATION
  Report Type: Spontaneous
  Country: US (occurrence: US)
  Receive Date: 20130104
  Receipt Date: 20130104
  Transmission Date: 20140127
  Serious: Yes (Other)
  Sender: FDA-Public Use
  Company Number: US-JNJFOC-20121213575

PATIENT
  Sex: 0

DRUGS (1)
  1. BENADRYL ALLERGY [Suspect]
     Indication: HYPERSENSITIVITY
     Route: 048

REACTIONS (3)
  - Hallucination [Unknown]
  - Nightmare [Unknown]
  - Fear [Unknown]
